FAERS Safety Report 9630233 (Version 2)
Quarter: 2013Q4

REPORT INFORMATION
  Report Type: Spontaneous
  Country: US (occurrence: US)
  Receive Date: 20131017
  Receipt Date: 20131217
  Transmission Date: 20140711
  Serious: Yes (Other)
  Sender: FDA-Public Use
  Company Number: US-ABBVIE-13P-163-1158889-00

PATIENT
  Age: 33 Year
  Sex: Female
  Weight: 63.56 kg

DRUGS (8)
  1. SYNTHROID [Suspect]
     Indication: HORMONE REPLACEMENT THERAPY
     Dosage: 0.1 PARTIALLY
     Dates: start: 20031111, end: 20031111
  2. SYNTHROID [Suspect]
     Dosage: 0.125
     Dates: start: 20031111
  3. SYNTHROID [Suspect]
     Dosage: 0.1
     Dates: start: 20040323
  4. SYNTHROID [Suspect]
     Dosage: 0.088
     Dates: start: 20040804
  5. SYNTHROID [Suspect]
     Dosage: 0.1
     Dates: start: 20041123
  6. SYNTHROID [Suspect]
     Dosage: 0.112
     Dates: start: 20050218
  7. SYNTHROID [Suspect]
     Dosage: 0.1/0.112
     Dates: start: 20050427
  8. SYNTHROID [Suspect]
     Dosage: 0.125
     Dates: start: 20060501

REACTIONS (2)
  - Abortion spontaneous [Unknown]
  - Vaginal haemorrhage [Unknown]
